FAERS Safety Report 6690598-5 (Version None)
Quarter: 2010Q2

REPORT INFORMATION
  Report Type: 
  Country: None (occurrence: None)
  Receive Date: 20100421
  Receipt Date: 20100415
  Transmission Date: 20101027
  Serious: Yes (Hospitalization)
  Sender: FDA-Public Use
  Company Number: B0647669A

PATIENT
  Sex: Female

DRUGS (16)
  1. AUGMENTIN '125' [Suspect]
     Indication: PNEUMONIA
     Dosage: 1G THREE TIMES PER DAY
     Route: 048
     Dates: start: 20100201, end: 20100203
  2. ROCEPHIN [Suspect]
     Indication: PNEUMONIA
     Dosage: 2G PER DAY
     Route: 042
     Dates: start: 20100203, end: 20100208
  3. ROVAMYCINE [Suspect]
     Indication: PNEUMONIA
     Dosage: 3IU6 THREE TIMES PER DAY
     Route: 048
     Dates: start: 20100203, end: 20100208
  4. FLAGYL [Suspect]
     Indication: PNEUMONIA
     Dosage: 500MG THREE TIMES PER DAY
     Route: 048
     Dates: start: 20100203, end: 20100211
  5. FORLAX [Concomitant]
     Route: 065
  6. LASIX [Concomitant]
     Route: 065
  7. CITALOPRAM HYDROBROMIDE [Concomitant]
     Indication: BIPOLAR DISORDER
     Route: 065
  8. IMOVANE [Concomitant]
     Indication: BIPOLAR DISORDER
     Route: 065
  9. VITAMIN C [Concomitant]
     Route: 065
  10. COVERSYL [Concomitant]
     Route: 065
  11. XANAX [Concomitant]
     Route: 065
  12. AMITRIPTYLINE HCL [Concomitant]
     Route: 065
  13. NEXIUM [Concomitant]
     Route: 065
  14. CALCIPARINE [Concomitant]
     Route: 065
  15. BRICANYL/ATROVENT [Concomitant]
     Route: 065
  16. TAVANIC [Concomitant]
     Route: 065
     Dates: start: 20100207

REACTIONS (4)
  - ACUTE GENERALISED EXANTHEMATOUS PUSTULOSIS [None]
  - HYPERSENSITIVITY [None]
  - RASH MACULO-PAPULAR [None]
  - SKIN LESION [None]
